FAERS Safety Report 6260442-9 (Version None)
Quarter: 2009Q3

REPORT INFORMATION
  Report Type: 
  Country: None (occurrence: None)
  Receive Date: 20090708
  Receipt Date: 20090626
  Transmission Date: 20100115
  Serious: Yes (Life-Threatening, Other)
  Sender: FDA-Public Use
  Company Number: JP-ROCHE-641426

PATIENT
  Sex: Male
  Weight: 88 kg

DRUGS (4)
  1. TAMIFLU [Suspect]
     Indication: INFLUENZA
     Route: 048
     Dates: start: 20090518, end: 20090518
  2. TAMIFLU [Suspect]
     Route: 048
     Dates: start: 20090519, end: 20090522
  3. FLOMOX [Concomitant]
     Route: 048
     Dates: start: 20090520, end: 20090521
  4. BLOPRESS [Concomitant]
     Route: 048

REACTIONS (2)
  - PLATELET COUNT DECREASED [None]
  - RENAL FAILURE ACUTE [None]
